FAERS Safety Report 8434071 (Version 4)
Quarter: 2013Q2

REPORT INFORMATION
  Report Type: Spontaneous
  Country: US (occurrence: US)
  Receive Date: 20120229
  Receipt Date: 20130410
  Transmission Date: 20140414
  Serious: Yes (Other)
  Sender: FDA-Public Use
  Company Number: US-ASTRAZENECA-2012SE11641

PATIENT
  Age: 55 Year
  Sex: Female
  Weight: 80.7 kg

DRUGS (17)
  1. NEXIUM [Suspect]
     Indication: HIATUS HERNIA
     Route: 048
  2. NEXIUM [Suspect]
     Indication: GASTROOESOPHAGEAL REFLUX DISEASE
     Route: 048
  3. NEXIUM [Suspect]
     Indication: HIATUS HERNIA
     Route: 048
  4. NEXIUM [Suspect]
     Indication: GASTROOESOPHAGEAL REFLUX DISEASE
     Route: 048
  5. SEROQUEL [Suspect]
     Route: 048
  6. BUSPIRONE [Concomitant]
  7. CLONAZEPAM [Concomitant]
  8. CITALOPRAM [Concomitant]
  9. CYCLOBENZAPRINE [Concomitant]
     Dosage: AT NIGHT
  10. AMPHETAMINE SALTS [Concomitant]
  11. FOLIC ACID [Concomitant]
  12. CALCIUM [Concomitant]
  13. POLYETHYLENE GLYCOL [Concomitant]
     Dosage: DAILY
  14. FEXOFENADINE [Concomitant]
  15. NYSTATIN [Concomitant]
     Dosage: THREE TIMES A DAY
  16. CODEINE [Concomitant]
  17. HYOSCYAMINE HCL [Concomitant]
     Dosage: 1-2 125 MG, DAILY

REACTIONS (11)
  - Basal cell carcinoma [Unknown]
  - Osteoporosis [Unknown]
  - Tooth fracture [Unknown]
  - Pain in extremity [Unknown]
  - Glossodynia [Unknown]
  - Tongue dry [Unknown]
  - Oedema peripheral [Unknown]
  - Intentional drug misuse [Unknown]
  - Intentional drug misuse [Unknown]
  - Intentional drug misuse [Unknown]
  - Off label use [Unknown]
